FAERS Safety Report 7685983-9 (Version None)
Quarter: 2011Q3

REPORT INFORMATION
  Report Type: 
  Country: None (occurrence: None)
  Receive Date: 20110816
  Receipt Date: 20110804
  Transmission Date: 20111222
  Serious: Yes (Disabling)
  Sender: FDA-Public Use
  Company Number: PHHY2011FR70631

PATIENT
  Sex: Male
  Weight: 72 kg

DRUGS (1)
  1. EVEROLIMUS [Suspect]
     Indication: RENAL CELL CARCINOMA
     Dosage: 10 MG, DAILY
     Dates: start: 20110406, end: 20110610

REACTIONS (4)
  - PULMONARY OEDEMA [None]
  - DIARRHOEA [None]
  - ASTHENIA [None]
  - COUGH [None]
